FAERS Safety Report 7933078-9 (Version None)
Quarter: 2011Q4

REPORT INFORMATION
  Report Type: 
  Country: None (occurrence: None)
  Receive Date: 20111122
  Receipt Date: 20110823
  Transmission Date: 20120403
  Serious: No
  Sender: FDA-Public Use
  Company Number: US-BAYER-2011-079769

PATIENT
  Age: 66 Year
  Sex: Female
  Weight: 58.957 kg

DRUGS (3)
  1. NAPROXEN (ALEVE) [Suspect]
     Indication: HEADACHE
     Dosage: 1 DF, BID
     Dates: start: 20110817, end: 20110817
  2. SPIRU-TEIN [Concomitant]
  3. ESTRADIOL [Concomitant]

REACTIONS (3)
  - NAUSEA [None]
  - UNEVALUABLE EVENT [None]
  - CONTUSION [None]
